FAERS Safety Report 6965486-7 (Version None)
Quarter: 2010Q3

REPORT INFORMATION
  Report Type: 
  Country: None (occurrence: None)
  Receive Date: 20100903
  Receipt Date: 20100826
  Transmission Date: 20110219
  Serious: Yes (Hospitalization)
  Sender: FDA-Public Use
  Company Number: B0672804A

PATIENT
  Sex: Female

DRUGS (1)
  1. IMIGRAN NASAL SPRAY [Suspect]
     Indication: MIGRAINE
     Dosage: 20MG VARIABLE DOSE
     Route: 045

REACTIONS (4)
  - CONVULSION [None]
  - DYSKINESIA [None]
  - EXTRAPYRAMIDAL DISORDER [None]
  - MUSCLE SPASTICITY [None]
